FAERS Safety Report 10297473 (Version 4)
Quarter: 2014Q4

REPORT INFORMATION
  Report Type: Spontaneous
  Country: JP (occurrence: JP)
  Receive Date: 20140711
  Receipt Date: 20141126
  Transmission Date: 20150528
  Serious: Yes (Other)
  Sender: FDA-Public Use
  Company Number: JP-ROCHE-1432000

PATIENT
  Age: 37 Year
  Sex: Female
  Weight: 36 kg

DRUGS (2)
  1. MIRCERA [Suspect]
     Active Substance: PEGZEREPOETIN ALFA
     Indication: NEPHROGENIC ANAEMIA
     Dosage: DOSAGE IS UNCERTAIN.
     Route: 058
     Dates: start: 20140602, end: 201406
  2. MIRCERA [Suspect]
     Active Substance: PEGZEREPOETIN ALFA
     Dosage: DOSAGE IS UNCERTAIN.
     Route: 058
     Dates: start: 20140630

REACTIONS (1)
  - Aplasia pure red cell [Recovered/Resolved]

NARRATIVE: CASE EVENT DATE: 20140630
